FAERS Safety Report 4761951-1 (Version None)
Quarter: 2005Q3

REPORT INFORMATION
  Report Type: 
  Country: None (occurrence: None)
  Receive Date: 20050906
  Receipt Date: 20050812
  Transmission Date: 20060218
  Serious: Yes (Life-Threatening)
  Sender: FDA-Public Use
  Company Number: JP-MERCK-0508USA02934

PATIENT
  Age: 56 Year
  Sex: Male

DRUGS (4)
  1. COZAAR [Suspect]
     Indication: HYPERTENSION
     Route: 048
     Dates: start: 20050607, end: 20050808
  2. BASEN [Suspect]
     Indication: DIABETES MELLITUS
     Route: 048
     Dates: start: 20050711, end: 20050808
  3. PREDONINE [Concomitant]
     Route: 048
  4. COTRIM [Concomitant]
     Route: 048

REACTIONS (2)
  - NASOPHARYNGITIS [None]
  - PLATELET COUNT DECREASED [None]
